FAERS Safety Report 16854370 (Version 3)
Quarter: 2020Q4

REPORT INFORMATION
  Report Type: Spontaneous
  Country: US (occurrence: US)
  Receive Date: 20190926
  Receipt Date: 20201106
  Transmission Date: 20210113
  Serious: Yes (Other)
  Sender: FDA-Public Use
  Company Number: US-GILEAD-2019-0429592

PATIENT
  Age: 63 Year
  Sex: Female
  Weight: 52.15 kg

DRUGS (27)
  1. LEXIVA [Concomitant]
     Active Substance: FOSAMPRENAVIR CALCIUM
  2. PREZCOBIX [Concomitant]
     Active Substance: COBICISTAT\DARUNAVIR ETHANOLATE
  3. LEVOFLOXACIN. [Concomitant]
     Active Substance: LEVOFLOXACIN
  4. SUSTIVA [Concomitant]
     Active Substance: EFAVIRENZ
  5. DIAZEPAM. [Concomitant]
     Active Substance: DIAZEPAM
  6. CIPROFLOXACIN. [Concomitant]
     Active Substance: CIPROFLOXACIN
  7. ACETAMINOPHEN. [Concomitant]
     Active Substance: ACETAMINOPHEN
  8. TRAMADOL. [Concomitant]
     Active Substance: TRAMADOL
  9. MEPRON [Concomitant]
     Active Substance: ATOVAQUONE
  10. ACYCLOVIR [ACICLOVIR] [Concomitant]
     Active Substance: ACYCLOVIR
  11. TRUVADA [Suspect]
     Active Substance: EMTRICITABINE\TENOFOVIR DISOPROXIL FUMARATE
     Indication: HIV INFECTION
     Dosage: UNK
     Route: 048
     Dates: start: 200405, end: 200907
  12. ATRIPLA [Suspect]
     Active Substance: EFAVIRENZ\EMTRICITABINE\TENOFOVIR DISOPROXIL FUMARATE
     Indication: HIV INFECTION
     Dosage: UNK
     Route: 048
     Dates: start: 200907, end: 201605
  13. LISINOPRIL. [Concomitant]
     Active Substance: LISINOPRIL
  14. RETROVIR [Concomitant]
     Active Substance: ZIDOVUDINE
  15. NORVIR [Concomitant]
     Active Substance: RITONAVIR
  16. OXYCODONE [Concomitant]
     Active Substance: OXYCODONE
  17. METRONIDAZOL [METRONIDAZOLE] [Concomitant]
     Active Substance: METRONIDAZOLE
  18. VALACYCLOVIR [Concomitant]
     Active Substance: VALACYCLOVIR HYDROCHLORIDE
  19. EMTRIVA [Concomitant]
     Active Substance: EMTRICITABINE
  20. LEVAQUIN [Concomitant]
     Active Substance: LEVOFLOXACIN
  21. GABAPENTIN. [Concomitant]
     Active Substance: GABAPENTIN
  22. NITROFURANTOIN. [Concomitant]
     Active Substance: NITROFURANTOIN
  23. IBUPROFEN. [Concomitant]
     Active Substance: IBUPROFEN
  24. PREZISTA [Concomitant]
     Active Substance: DARUNAVIR ETHANOLATE
  25. TIVICAY [Concomitant]
     Active Substance: DOLUTEGRAVIR SODIUM
  26. DOXYCYCLINE. [Concomitant]
     Active Substance: DOXYCYCLINE
  27. OXYBUTYNIN. [Concomitant]
     Active Substance: OXYBUTYNIN CHLORIDE

REACTIONS (23)
  - Osteoporosis [Not Recovered/Not Resolved]
  - Acute kidney injury [Not Recovered/Not Resolved]
  - Anhedonia [Not Recovered/Not Resolved]
  - Fatigue [Not Recovered/Not Resolved]
  - Glomerular filtration rate abnormal [Not Recovered/Not Resolved]
  - Loss of personal independence in daily activities [Not Recovered/Not Resolved]
  - Decreased activity [Not Recovered/Not Resolved]
  - Rib fracture [Not Recovered/Not Resolved]
  - Chronic kidney disease [Unknown]
  - Foot fracture [Unknown]
  - Ankle fracture [Not Recovered/Not Resolved]
  - Quality of life decreased [Not Recovered/Not Resolved]
  - Blood creatinine increased [Not Recovered/Not Resolved]
  - Protein urine present [Not Recovered/Not Resolved]
  - Fanconi syndrome acquired [Not Recovered/Not Resolved]
  - Anxiety [Not Recovered/Not Resolved]
  - Wrist fracture [Not Recovered/Not Resolved]
  - Fear [Not Recovered/Not Resolved]
  - Economic problem [Not Recovered/Not Resolved]
  - Mobility decreased [Not Recovered/Not Resolved]
  - Pain [Not Recovered/Not Resolved]
  - Emotional distress [Not Recovered/Not Resolved]
  - Bone density decreased [Not Recovered/Not Resolved]

NARRATIVE: CASE EVENT DATE: 2008
